FAERS Safety Report 8807617 (Version 1)
Quarter: 2012Q4

REPORT INFORMATION
  Report Type: 
  Country: BR (occurrence: BR)
  Receive Date: 20120925
  Receipt Date: 20120925
  Transmission Date: 20130627
  Serious: Yes (Other)
  Sender: FDA-Public Use
  Company Number: BR-PFIZER INC-2012147114

PATIENT
  Age: 43 Year
  Sex: Male
  Weight: 105 kg

DRUGS (7)
  1. SOMAVERT [Suspect]
     Indication: ACROMEGALY
     Dosage: 10 mg, 1x/day
     Route: 058
     Dates: start: 20111130
  2. SANDOSTATINA [Concomitant]
     Indication: ACROMEGALY
     Dosage: UNK
     Dates: start: 2008
  3. PURAN T4 [Concomitant]
     Indication: ACROMEGALY
     Dosage: 100 mg, 1x/day
     Dates: start: 2010
  4. PREDNISONE [Concomitant]
     Indication: ACROMEGALY
     Dosage: UNK
     Dates: start: 2007
  5. DURATESTON [Concomitant]
     Indication: ACROMEGALY
     Dosage: every 15 days
     Dates: start: 2008
  6. CORTICORTEN [Concomitant]
     Indication: ACROMEGALY
     Dosage: UNK
     Dates: start: 2008
  7. DOSTINEX [Concomitant]
     Indication: ACROMEGALY
     Dosage: UNK
     Dates: start: 2008, end: 201202

REACTIONS (4)
  - Umbilical hernia [Unknown]
  - Wrong technique in drug usage process [Recovered/Resolved]
  - Injection site haematoma [Recovered/Resolved]
  - Injection site pain [Not Recovered/Not Resolved]
